FAERS Safety Report 26004084 (Version 1)
Quarter: 2025Q4

REPORT INFORMATION
  Report Type: Spontaneous
  Country: US (occurrence: US)
  Receive Date: 20251106
  Receipt Date: 20251106
  Transmission Date: 20260119
  Serious: No
  Sender: SANOFI AVENTIS
  Company Number: US-SA-2025SA324578

PATIENT
  Sex: Female

DRUGS (1)
  1. DUPIXENT [Suspect]
     Active Substance: DUPILUMAB
     Indication: Dermatitis atopic
     Dosage: 300 MG, QOW
     Route: 058
     Dates: start: 2022

REACTIONS (5)
  - Wheezing [Recovering/Resolving]
  - Sneezing [Recovering/Resolving]
  - Pruritus [Recovering/Resolving]
  - Dermatitis atopic [Recovering/Resolving]
  - Seasonal allergy [Recovering/Resolving]
